FAERS Safety Report 10041149 (Version 2)
Quarter: 2014Q1

REPORT INFORMATION
  Report Type: Report from Study
  Country: BR (occurrence: BR)
  Receive Date: 20140327
  Receipt Date: 20140327
  Transmission Date: 20141002
  Serious: Yes (Hospitalization, Other)
  Sender: FDA-Public Use
  Company Number: PHHY2014BR023118

PATIENT
  Age: 86 Year
  Sex: Male

DRUGS (4)
  1. EXELON PATCH [Suspect]
     Indication: DEMENTIA ALZHEIMER^S TYPE
     Dosage: 9MG/5CM2 (DAILY DOSE: 4.6 MG/24 HOUR) DAILY
     Route: 062
     Dates: end: 20140217
  2. EXELON PATCH [Suspect]
     Dosage: 18MG/10CM2 (DAILY DOSE: 9.5 MG/24 HOUR)
     Route: 062
     Dates: start: 20140218
  3. ATENOLOL [Suspect]
     Indication: CARDIAC DISORDER
     Dosage: 1 DF, DAILY
     Route: 048
  4. LOSARTAN [Suspect]
     Indication: BLOOD PRESSURE ABNORMAL
     Dosage: 1 DF, (50 MG) DAILY
     Route: 048

REACTIONS (15)
  - Pneumonia [Recovering/Resolving]
  - Pyrexia [Recovered/Resolved]
  - Lung disorder [Not Recovered/Not Resolved]
  - Hypotension [Recovered/Resolved]
  - Blood pressure increased [Recovered/Resolved]
  - Musculoskeletal stiffness [Unknown]
  - Hearing impaired [Recovered/Resolved]
  - Dysstasia [Recovered/Resolved]
  - Dysphagia [Recovering/Resolving]
  - Apathy [Not Recovered/Not Resolved]
  - Daydreaming [Unknown]
  - Fall [Recovered/Resolved]
  - Abasia [Unknown]
  - Tremor [Unknown]
  - Malaise [Recovered/Resolved]
